FAERS Safety Report 4639783-4 (Version None)
Quarter: 2005Q2

REPORT INFORMATION
  Report Type: 
  Country: None (occurrence: None)
  Receive Date: 20050328
  Receipt Date: 20050112
  Transmission Date: 20051028
  Serious: No
  Sender: FDA-Public Use
  Company Number: USA050188105

PATIENT
  Age: 15 Year
  Sex: Female

DRUGS (1)
  1. STRATTERA [Suspect]
     Indication: ATTENTION DEFICIT/HYPERACTIVITY DISORDER
     Dosage: 80 MG DAY
     Dates: start: 20041201

REACTIONS (4)
  - ABNORMAL BEHAVIOUR [None]
  - ANOREXIA [None]
  - NAUSEA [None]
  - NYSTAGMUS [None]
